FAERS Safety Report 17579700 (Version 3)
Quarter: 2020Q4

REPORT INFORMATION
  Report Type: Spontaneous
  Country: US (occurrence: US)
  Receive Date: 20200325
  Receipt Date: 20201120
  Transmission Date: 20210113
  Serious: No
  Sender: FDA-Public Use
  Company Number: US-TEVA-2020-US-1212288

PATIENT
  Age: 51 Year
  Sex: Female

DRUGS (9)
  1. COPAXONE [Suspect]
     Active Substance: GLATIRAMER ACETATE
     Indication: MULTIPLE SCLEROSIS
     Route: 058
     Dates: start: 20180315
  2. OMEPRAZOLE. [Concomitant]
     Active Substance: OMEPRAZOLE
  3. ADVIL [Concomitant]
     Active Substance: IBUPROFEN
  4. CITALOPRAM [Concomitant]
     Active Substance: CITALOPRAM HYDROBROMIDE
  5. ASPIRIN. [Concomitant]
     Active Substance: ASPIRIN
     Dosage: EC
  6. CENTRUM TAB PERFORMA [Concomitant]
  7. BIOTIN [Concomitant]
     Active Substance: BIOTIN
  8. IRON [Concomitant]
     Active Substance: IRON
  9. VITAMIND [Concomitant]
     Dosage: 400 UNIT

REACTIONS (12)
  - Depressed mood [Not Recovered/Not Resolved]
  - Depression [Not Recovered/Not Resolved]
  - Paraesthesia [Not Recovered/Not Resolved]
  - Fatigue [Not Recovered/Not Resolved]
  - Atrophy [Unknown]
  - Pain in extremity [Unknown]
  - Injection site haemorrhage [Unknown]
  - Asthenia [Not Recovered/Not Resolved]
  - Injection site pain [Unknown]
  - Visual impairment [Unknown]
  - Skin disorder [Unknown]
  - Muscular weakness [Not Recovered/Not Resolved]
